FAERS Safety Report 10563470 (Version 1)
Quarter: 2014Q4

REPORT INFORMATION
  Report Type: Spontaneous
  Country: US (occurrence: None)
  Receive Date: 20141103
  Receipt Date: 20141103
  Transmission Date: 20150529
  Serious: Yes (Disabling)
  Sender: FDA-Public Use
  Company Number: None

PATIENT
  Age: 62 Year
  Sex: Female
  Weight: 61.24 kg

DRUGS (1)
  1. CITALOPRAM [Suspect]
     Active Substance: CITALOPRAM HYDROBROMIDE
     Indication: ANXIETY
     Dosage: 1 TAB, ONCE DAILY, TAKEN BY MOUTH
     Route: 048

REACTIONS (8)
  - Tremor [None]
  - Disturbance in attention [None]
  - Product substitution issue [None]
  - Anxiety [None]
  - Condition aggravated [None]
  - Stress [None]
  - Angina pectoris [None]
  - Insomnia [None]
